FAERS Safety Report 14894729 (Version 4)
Quarter: 2018Q3

REPORT INFORMATION
  Report Type: Report from Study
  Country: JP (occurrence: JP)
  Receive Date: 20180515
  Receipt Date: 20180716
  Transmission Date: 20181010
  Serious: Yes (Hospitalization, Other)
  Sender: FDA-Public Use
  Company Number: JP-009507513-1805JPN000977J

PATIENT
  Age: 74 Year
  Sex: Female
  Weight: 50 kg

DRUGS (4)
  1. HOCHUEKKITO [Suspect]
     Active Substance: HERBALS
     Indication: DECREASED APPETITE
     Dosage: 2.5 G, TID
     Route: 048
     Dates: start: 20180417, end: 20180514
  2. PEMBROLIZUMAB. [Suspect]
     Active Substance: PEMBROLIZUMAB
     Indication: TRANSITIONAL CELL CARCINOMA
     Dosage: 200 MG, Q3W
     Route: 041
     Dates: start: 20180404, end: 20180424
  3. MEVALOTIN [Suspect]
     Active Substance: PRAVASTATIN SODIUM
     Route: 048
  4. CALONAL [Suspect]
     Active Substance: ACETAMINOPHEN
     Route: 065

REACTIONS (6)
  - Hepatic function abnormal [Recovering/Resolving]
  - Hypothyroidism [Recovering/Resolving]
  - Nausea [Unknown]
  - Malaise [Recovered/Resolved]
  - Hypothyroidism [Not Recovered/Not Resolved]
  - Decreased appetite [Recovered/Resolved]

NARRATIVE: CASE EVENT DATE: 201805
